FAERS Safety Report 8172433-1 (Version None)
Quarter: 2012Q1

REPORT INFORMATION
  Report Type: 
  Country: None (occurrence: None)
  Receive Date: 20120229
  Receipt Date: 20120218
  Transmission Date: 20120608
  Serious: Yes (Other)
  Sender: FDA-Public Use
  Company Number: NL-PAR PHARMACEUTICAL, INC-2012SCPR004229

PATIENT

DRUGS (2)
  1. DEXAMETHASONE [Suspect]
     Indication: ACUTE LYMPHOCYTIC LEUKAEMIA
     Dosage: 6 MG/M2, / DAY FOR 5 DAYS EVERY 3 WEEKS
     Route: 048
  2. ONCASPAR [Suspect]
     Indication: ACUTE LYMPHOCYTIC LEUKAEMIA
     Dosage: 2500 U/M2, AS 1-HOUR INFUSION ONCE EVERY 2 WEEKS.

REACTIONS (4)
  - BLOOD CHOLESTEROL INCREASED [None]
  - TOXICITY TO VARIOUS AGENTS [None]
  - HYPERTRIGLYCERIDAEMIA [None]
  - DEPRESSION [None]
